FAERS Safety Report 6743466-4 (Version None)
Quarter: 2010Q2

REPORT INFORMATION
  Report Type: 
  Country: None (occurrence: None)
  Receive Date: 20100527
  Receipt Date: 20091217
  Transmission Date: 20101027
  Serious: Yes (Other)
  Sender: FDA-Public Use
  Company Number: US-BAUSCH-2009BL006730

PATIENT
  Age: 28 Year
  Sex: Female

DRUGS (3)
  1. FLUOCINOLONE ACETONIDE [Suspect]
     Indication: UVEITIS
     Route: 031
     Dates: start: 20070601
  2. DIAMOX SRC [Concomitant]
     Indication: INTRAOCULAR PRESSURE INCREASED
     Route: 065
  3. CELLCEPT /USA/ [Concomitant]
     Indication: DRUG USE FOR UNKNOWN INDICATION
     Route: 065

REACTIONS (4)
  - DRUG EFFECT DECREASED [None]
  - EYE PAIN [None]
  - HEADACHE [None]
  - INTRAOCULAR PRESSURE INCREASED [None]
